FAERS Safety Report 21774617 (Version 2)
Quarter: 2023Q1

REPORT INFORMATION
  Report Type: Report from Study
  Country: FR (occurrence: FR)
  Receive Date: 20221224
  Receipt Date: 20230104
  Transmission Date: 20230417
  Serious: Yes (Death)
  Sender: FDA-Public Use
  Company Number: FR-002147023-NVSC2022FR297775

PATIENT
  Sex: Male
  Weight: 40 kg

DRUGS (5)
  1. DABRAFENIB [Suspect]
     Active Substance: DABRAFENIB
     Indication: Metastatic malignant melanoma
     Dosage: 300 MG
     Route: 048
     Dates: start: 20211009
  2. DABRAFENIB [Suspect]
     Active Substance: DABRAFENIB
     Dosage: 75 MG, QD
     Route: 065
  3. TRAMETINIB [Suspect]
     Active Substance: TRAMETINIB
     Indication: Metastatic malignant melanoma
     Dosage: 2 MG
     Route: 048
     Dates: start: 20211009
  4. TRAMETINIB [Suspect]
     Active Substance: TRAMETINIB
     Dosage: 2 MG, QD
     Route: 065
  5. CLAFORAN [Concomitant]
     Active Substance: CEFOTAXIME SODIUM
     Indication: Product used for unknown indication
     Dosage: 2 G, QD
     Route: 065
     Dates: start: 20221201

REACTIONS (1)
  - COVID-19 [Fatal]
